FAERS Safety Report 7628191-X (Version None)
Quarter: 2011Q3

REPORT INFORMATION
  Report Type: 
  Country: None (occurrence: None)
  Receive Date: 20110722
  Receipt Date: 20101214
  Transmission Date: 20111222
  Serious: No
  Sender: FDA-Public Use
  Company Number: US-BAYER-2011-004463

PATIENT

DRUGS (1)
  1. BETASERON [Suspect]
     Route: 058

REACTIONS (1)
  - ADVERSE EVENT [None]
